FAERS Safety Report 9372593 (Version 1)
Quarter: 2013Q2

REPORT INFORMATION
  Report Type: Report from Study
  Country: US (occurrence: US)
  Receive Date: 20130627
  Receipt Date: 20130627
  Transmission Date: 20140414
  Serious: Yes (Death)
  Sender: FDA-Public Use
  Company Number: US-MYLANLABS-2013S1001891

PATIENT
  Age: 53 Year
  Sex: Male

DRUGS (15)
  1. CLOZAPINE TABLETS [Suspect]
     Route: 048
     Dates: start: 200807, end: 201212
  2. SIMVASTATIN [Concomitant]
  3. LISINOPRIL [Concomitant]
  4. CARVEDILOL [Concomitant]
  5. SENNA PLUS /00142201/ [Concomitant]
  6. DOCUSATE SODIUM [Concomitant]
  7. ASPIRIN [Concomitant]
  8. ALLOPURINOL [Concomitant]
  9. LEVOTHYROXINE [Concomitant]
  10. AMLODIPINE [Concomitant]
  11. CITALOPRAM [Concomitant]
  12. CITALOPRAM [Concomitant]
  13. DEPAKOTE ER [Concomitant]
  14. SEROQUEL XR [Concomitant]
  15. CLONAZEPAM [Concomitant]

REACTIONS (1)
  - Death [Fatal]
